FAERS Safety Report 12218458 (Version 1)
Quarter: 2016Q1

REPORT INFORMATION
  Report Type: Spontaneous
  Country: FR (occurrence: FR)
  Receive Date: 20160329
  Receipt Date: 20160329
  Transmission Date: 20160526
  Serious: Yes (Death, Life-Threatening, Hospitalization, Other)
  Sender: FDA-Public Use
  Company Number: FR-ASTRAZENECA-2016SE32188

PATIENT
  Age: 67 Year
  Sex: Male

DRUGS (3)
  1. PREVISCAN [Suspect]
     Active Substance: FLUINDIONE
     Route: 048
     Dates: start: 2010, end: 20160122
  2. CRESTOR [Suspect]
     Active Substance: ROSUVASTATIN CALCIUM
     Route: 048
     Dates: start: 2006, end: 20151230
  3. LASILIX [Suspect]
     Active Substance: FUROSEMIDE
     Route: 048
     Dates: start: 2010, end: 20160123

REACTIONS (9)
  - Pulmonary hypertension [Unknown]
  - Cardiopulmonary failure [Unknown]
  - Shock haemorrhagic [Unknown]
  - Renal failure [Unknown]
  - Death [Fatal]
  - Pleural effusion [Unknown]
  - Lupus-like syndrome [Not Recovered/Not Resolved]
  - Cardiac arrest [Unknown]
  - Interstitial lung disease [Unknown]

NARRATIVE: CASE EVENT DATE: 2011
